FAERS Safety Report 17869036 (Version 1)
Quarter: 2020Q2

REPORT INFORMATION
  Report Type: Spontaneous
  Country: CZ (occurrence: CZ)
  Receive Date: 20200608
  Receipt Date: 20200608
  Transmission Date: 20200714
  Serious: Yes (Hospitalization)
  Sender: FDA-Public Use
  Company Number: CZ-BIOGEN-2020BI00882392

PATIENT
  Age: 47 Year
  Sex: Female
  Weight: 55 kg

DRUGS (1)
  1. TYSABRI [Suspect]
     Active Substance: NATALIZUMAB
     Indication: MULTIPLE SCLEROSIS
     Route: 042
     Dates: start: 20160212

REACTIONS (2)
  - Fall [Recovered/Resolved]
  - Femur fracture [Unknown]

NARRATIVE: CASE EVENT DATE: 20200227
